FAERS Safety Report 21688964 (Version 3)
Quarter: 2023Q1

REPORT INFORMATION
  Report Type: Spontaneous
  Country: CA (occurrence: None)
  Receive Date: 20221206
  Receipt Date: 20230106
  Transmission Date: 20230418
  Serious: Yes (Hospitalization, Other)
  Sender: FDA-Public Use
  Company Number: 2022A394984

PATIENT
  Age: 26400 Day
  Sex: Male
  Weight: 99.8 kg

DRUGS (4)
  1. EVUSHELD [Suspect]
     Active Substance: CILGAVIMAB\TIXAGEVIMAB
     Indication: COVID-19 prophylaxis
     Dosage: 150/150
     Route: 030
     Dates: start: 20220811
  2. UNSPECIFIED INGREDIENT [Concomitant]
     Active Substance: UNSPECIFIED INGREDIENT
     Route: 065
     Dates: start: 202001
  3. APIXABAN [Concomitant]
     Active Substance: APIXABAN
     Indication: Thrombosis
  4. VITAMIN D [Concomitant]
     Active Substance: VITAMIN D NOS

REACTIONS (4)
  - Ataxia [Recovered/Resolved]
  - Cerebrovascular accident [Recovered/Resolved]
  - Carotid arteriosclerosis [Unknown]
  - Atrial fibrillation [Unknown]

NARRATIVE: CASE EVENT DATE: 20220814
